FAERS Safety Report 4707684-9 (Version None)
Quarter: 2005Q2

REPORT INFORMATION
  Report Type: 
  Country: None (occurrence: None)
  Receive Date: 20050629
  Receipt Date: 20050519
  Transmission Date: 20051028
  Serious: No
  Sender: FDA-Public Use
  Company Number: 05P-163-0300880-00

PATIENT
  Age: 54 Year
  Sex: Female
  Weight: 105 kg

DRUGS (3)
  1. HUMIRA [Suspect]
     Indication: RHEUMATOID ARTHRITIS
     Dosage: 40 MG, 1 IN 2 WK, SUBCUTANEOUS
     Route: 058
     Dates: start: 20050513
  2. LEVOTHYROXINE SODIUM [Concomitant]
  3. BLOOD PRESSURE MEDICINE [Concomitant]

REACTIONS (2)
  - HEADACHE [None]
  - NIGHT SWEATS [None]
